FAERS Safety Report 6912942-3 (Version None)
Quarter: 2010Q3

REPORT INFORMATION
  Report Type: 
  Country: None (occurrence: None)
  Receive Date: 20100806
  Receipt Date: 20090421
  Transmission Date: 20110219
  Serious: Yes (Other)
  Sender: FDA-Public Use
  Company Number: US-PFIZER INC-2009161999

PATIENT
  Sex: Female

DRUGS (1)
  1. LOPID [Suspect]

REACTIONS (2)
  - GALLBLADDER DISORDER [None]
  - PANCREATITIS ACUTE [None]
